FAERS Safety Report 13962723 (Version 1)
Quarter: 2017Q3

REPORT INFORMATION
  Report Type: Spontaneous
  Country: GB (occurrence: GB)
  Receive Date: 20170913
  Receipt Date: 20170913
  Transmission Date: 20171128
  Serious: Yes (Other)
  Sender: FDA-Public Use
  Company Number: GB-BRISTOL-MYERS SQUIBB COMPANY-BMS-2017-081338

PATIENT
  Age: 51 Year
  Sex: Female
  Weight: 70 kg

DRUGS (6)
  1. ALOGLIPTIN. [Concomitant]
     Active Substance: ALOGLIPTIN
     Indication: BLOOD GLUCOSE INCREASED
     Dosage: 1 DF, UNK
     Route: 065
     Dates: start: 20170510
  2. MICONAZOLE. [Concomitant]
     Active Substance: MICONAZOLE
     Indication: PRODUCT USED FOR UNKNOWN INDICATION
     Dosage: 2 DF, UNK
     Route: 065
     Dates: start: 20170726, end: 20170809
  3. GLICLAZIDE [Concomitant]
     Active Substance: GLICLAZIDE
     Indication: PRODUCT USED FOR UNKNOWN INDICATION
     Dosage: 1 DF, UNK
     Route: 065
     Dates: start: 20170510
  4. METFORMIN HYDROCHLORIDE. [Suspect]
     Active Substance: METFORMIN HYDROCHLORIDE
     Indication: PRODUCT USED FOR UNKNOWN INDICATION
     Dosage: 500 MG, BID
     Route: 065
     Dates: start: 20170822
  5. ATORVASTATIN [Concomitant]
     Active Substance: ATORVASTATIN
     Indication: PRODUCT USED FOR UNKNOWN INDICATION
     Dosage: 1 DF, UNK
     Route: 065
     Dates: start: 20141003
  6. EMPAGLIFLOZIN [Concomitant]
     Active Substance: EMPAGLIFLOZIN
     Indication: PRODUCT USED FOR UNKNOWN INDICATION
     Dosage: 1 DF, UNK
     Route: 065
     Dates: start: 20170510

REACTIONS (1)
  - Muscular weakness [Recovered/Resolved]

NARRATIVE: CASE EVENT DATE: 20170822
